FAERS Safety Report 24236496 (Version 1)
Quarter: 2024Q3

REPORT INFORMATION
  Report Type: Report from Study
  Country: CA (occurrence: CA)
  Receive Date: 20240822
  Receipt Date: 20240822
  Transmission Date: 20241016
  Serious: Yes (Other)
  Sender: ABBVIE
  Company Number: CA-ABBVIE-5884231

PATIENT
  Sex: Male

DRUGS (2)
  1. SKYRIZI [Suspect]
     Active Substance: RISANKIZUMAB-RZAA
     Indication: Crohn^s disease
     Route: 058
     Dates: start: 20230824
  2. REMICADE [Concomitant]
     Active Substance: INFLIXIMAB
     Indication: Product used for unknown indication

REACTIONS (8)
  - Gastrointestinal obstruction [Not Recovered/Not Resolved]
  - Therapeutic product effect incomplete [Unknown]
  - Malabsorption [Unknown]
  - Short-bowel syndrome [Unknown]
  - Unevaluable event [Recovering/Resolving]
  - Arthralgia [Unknown]
  - Ileal ulcer [Not Recovered/Not Resolved]
  - Gastrointestinal oedema [Not Recovered/Not Resolved]

NARRATIVE: CASE EVENT DATE: 20240101
